FAERS Safety Report 5296840-X (Version None)
Quarter: 2007Q2

REPORT INFORMATION
  Report Type: 
  Country: None (occurrence: None)
  Receive Date: 20070413
  Receipt Date: 20070403
  Transmission Date: 20071010
  Serious: Yes (Disabling)
  Sender: FDA-Public Use
  Company Number: NL-PFIZER INC-2007027676

PATIENT
  Sex: Male
  Weight: 71 kg

DRUGS (4)
  1. LIPITOR [Suspect]
     Indication: STENT PLACEMENT
     Route: 048
  2. BISOPROLOL FUMARATE [Suspect]
     Indication: STENT PLACEMENT
     Route: 048
     Dates: start: 20030801, end: 20060901
  3. ASCAL CARDIO [Concomitant]
     Route: 048
  4. SERETIDE [Concomitant]

REACTIONS (8)
  - ARTHRALGIA [None]
  - CHEST PAIN [None]
  - ERECTILE DYSFUNCTION [None]
  - FATIGUE [None]
  - MUSCLE SPASMS [None]
  - MYALGIA [None]
  - PRURITUS [None]
  - WEIGHT INCREASED [None]
